FAERS Safety Report 6312717-2 (Version None)
Quarter: 2009Q3

REPORT INFORMATION
  Report Type: 
  Country: None (occurrence: None)
  Receive Date: 20090814
  Receipt Date: 20090814
  Transmission Date: 20100115
  Serious: Yes (Other)
  Sender: FDA-Public Use
  Company Number: None

PATIENT
  Age: 86 Year
  Sex: Female

DRUGS (1)
  1. PATANASE [Suspect]
     Indication: RHINITIS ALLERGIC
     Dosage: 2 SPRAYS BID NASAL
     Route: 045
     Dates: start: 20090803, end: 20090804

REACTIONS (2)
  - DYSGEUSIA [None]
  - HEADACHE [None]
